FAERS Safety Report 17608551 (Version 4)
Quarter: 2023Q2

REPORT INFORMATION
  Report Type: Spontaneous
  Country: CA (occurrence: CA)
  Receive Date: 20200331
  Receipt Date: 20230518
  Transmission Date: 20230722
  Serious: Yes (Death, Other)
  Sender: FDA-Public Use
  Company Number: CA-009507513-1906CAN004222

PATIENT
  Age: 51 Year
  Sex: Male

DRUGS (10)
  1. PREVYMIS [Suspect]
     Active Substance: LETERMOVIR
     Indication: Cytomegalovirus syndrome
     Dosage: 240 MILLIGRAM, ONCE DAILY
     Route: 042
     Dates: start: 20180125, end: 20180208
  2. CYCLOSPORINE [Suspect]
     Active Substance: CYCLOSPORINE
     Indication: Immunosuppressant drug therapy
     Dosage: TARGET TROUGH LEVEL 200-250 MICRO-G/L
     Route: 065
     Dates: start: 2017, end: 20180126
  3. FOSCARNET SODIUM [Suspect]
     Active Substance: FOSCARNET SODIUM
     Indication: Cytomegalovirus syndrome
     Dosage: 180 MG/KG/DAY
     Route: 042
     Dates: start: 20180117, end: 20180125
  4. GANCICLOVIR [Suspect]
     Active Substance: GANCICLOVIR
     Indication: Cytomegalovirus syndrome
     Dosage: 5 MG/KG, 2 EVERY 1 DAYS
     Route: 042
     Dates: start: 20171201, end: 20180116
  5. METHYLPREDNISOLONE [Suspect]
     Active Substance: METHYLPREDNISOLONE
     Indication: Immunosuppression
     Dosage: 1 MILLIGRAM/KILOGRAM, ONCE
     Route: 042
  6. MYCOPHENOLIC ACID [Suspect]
     Active Substance: MYCOPHENOLIC ACID
     Indication: Immunosuppressant drug therapy
     Dosage: 1080.0 MILLIGRAM, 1 EVERY 1 DAYS
     Route: 065
  7. PREDNISONE [Suspect]
     Active Substance: PREDNISONE
     Indication: Immunosuppressant drug therapy
     Dosage: 15 MILLIGRAM, 1 EVERY 1 DAYS
     Route: 065
     Dates: start: 2017, end: 201712
  8. PREDNISONE [Suspect]
     Active Substance: PREDNISONE
     Dosage: 40 MILLIGRAM, QD
     Dates: start: 201712, end: 201802
  9. TACROLIMUS [Suspect]
     Active Substance: TACROLIMUS
     Indication: Immunosuppressant drug therapy
     Dosage: UNK
     Route: 065
     Dates: start: 20180126, end: 201802
  10. VALGANCICLOVIR HYDROCHLORIDE [Suspect]
     Active Substance: VALGANCICLOVIR HYDROCHLORIDE
     Indication: Cytomegalovirus test positive
     Route: 065

REACTIONS (6)
  - Acute kidney injury [Fatal]
  - Pneumonia pseudomonal [Fatal]
  - Bacterial sepsis [Fatal]
  - Dyspnoea [Fatal]
  - Hyperkalaemia [Fatal]
  - Off label use [Unknown]

NARRATIVE: CASE EVENT DATE: 20180125
